FAERS Safety Report 8457201-5 (Version None)
Quarter: 2012Q2

REPORT INFORMATION
  Report Type: 
  Country: None (occurrence: None)
  Receive Date: 20120621
  Receipt Date: 20120615
  Transmission Date: 20120825
  Serious: Yes (Hospitalization)
  Sender: FDA-Public Use
  Company Number: PHEH2012US012081

PATIENT
  Sex: Female

DRUGS (2)
  1. MYFORTIC [Suspect]
     Indication: LUNG TRANSPLANT
     Dosage: 180 MG, BID
  2. XANAX [Suspect]
     Dosage: UNK UKN, UNK

REACTIONS (7)
  - LUNG TRANSPLANT REJECTION [None]
  - CONVULSION [None]
  - MALAISE [None]
  - CEREBROVASCULAR ACCIDENT [None]
  - PNEUMOTHORAX [None]
  - PNEUMONIA [None]
  - OVERDOSE [None]
